FAERS Safety Report 13288055 (Version 1)
Quarter: 2017Q1

REPORT INFORMATION
  Report Type: Spontaneous
  Country: US (occurrence: US)
  Receive Date: 20170302
  Receipt Date: 20170302
  Transmission Date: 20170428
  Serious: Yes (Other)
  Sender: FDA-Public Use
  Company Number: US-ACCORD-048579

PATIENT
  Sex: Male

DRUGS (1)
  1. CAPECITABINE ACCORD [Suspect]
     Active Substance: CAPECITABINE
     Indication: PRODUCT USED FOR UNKNOWN INDICATION
     Dosage: STRENGTH: 500 MG
     Dates: start: 20170130

REACTIONS (1)
  - Haematochezia [Unknown]
